FAERS Safety Report 8673466 (Version 2)
Quarter: 2012Q4

REPORT INFORMATION
  Report Type: 
  Country: US (occurrence: US)
  Receive Date: 20120719
  Receipt Date: 20120910
  Transmission Date: 20130627
  Serious: Yes (Hospitalization)
  Sender: FDA-Public Use
  Company Number: US-BAYER-2012-072047

PATIENT
  Age: 42 Year
  Sex: Female
  Weight: 76.19 kg

DRUGS (1)
  1. MIRENA [Suspect]
     Indication: MENORRHAGIA
     Dosage: 20 mcg/24hr, CONT
     Route: 015
     Dates: start: 20120124, end: 20120705

REACTIONS (8)
  - Abdominal pain [None]
  - Vaginal haemorrhage [None]
  - Vomiting [None]
  - Nausea [None]
  - Back pain [None]
  - Metrorrhagia [None]
  - Pelvic pain [None]
  - Pyrexia [None]
